FAERS Safety Report 12854559 (Version 2)
Quarter: 2017Q1

REPORT INFORMATION
  Report Type: Spontaneous
  Country: US (occurrence: US)
  Receive Date: 20161017
  Receipt Date: 20170329
  Transmission Date: 20170428
  Serious: No
  Sender: FDA-Public Use
  Company Number: US-SHIRE-US201614052

PATIENT

DRUGS (2)
  1. FIRAZYR [Suspect]
     Active Substance: ICATIBANT ACETATE
     Indication: EXPOSURE DURING BREAST FEEDING
  2. FIRAZYR [Suspect]
     Active Substance: ICATIBANT ACETATE
     Indication: EXPOSURE DURING PREGNANCY
     Dosage: 30 MG, AS REQ^D
     Route: 065
     Dates: start: 2016

REACTIONS (2)
  - Foetal exposure during pregnancy [Not Recovered/Not Resolved]
  - Exposure during breast feeding [Not Recovered/Not Resolved]

NARRATIVE: CASE EVENT DATE: 2016
